FAERS Safety Report 9836677 (Version 1)
Quarter: 2013Q4

REPORT INFORMATION
  Report Type: Spontaneous
  Country: US (occurrence: None)
  Receive Date: 20131120
  Receipt Date: 20131120
  Transmission Date: 20140711
  Serious: Yes (Other)
  Sender: FDA-Public Use
  Company Number: 1000048974

PATIENT
  Age: 65 Year
  Sex: Female

DRUGS (5)
  1. VIIBRYD [Suspect]
     Indication: DEPRESSION
     Dosage: 10MG (10MG, 1 IN 1D) ORAL
     Route: 048
     Dates: start: 20130906, end: 20130912
  2. MORPHINE (MORPHINE) (MORPHINE) [Concomitant]
  3. OXYCODONE (OXYCODONE) (OXYCODONE) [Concomitant]
  4. VITAMIN B (VITAMIN B) [Concomitant]
  5. POTASSIUM (POTASSIUM) (POTASSIUM) [Concomitant]

REACTIONS (4)
  - Nausea [None]
  - Mood swings [None]
  - Depression [None]
  - Irritability [None]
